FAERS Safety Report 8582095-7 (Version None)
Quarter: 2012Q3

REPORT INFORMATION
  Report Type: 
  Country: None (occurrence: None)
  Receive Date: 20120809
  Receipt Date: 20120726
  Transmission Date: 20120928
  Serious: Yes (Other)
  Sender: FDA-Public Use
  Company Number: JP-PFIZER INC-2012176165

PATIENT
  Age: 82 Year
  Sex: Female

DRUGS (1)
  1. AMIODARONE HYDROCHLORIDE [Suspect]
     Indication: SUPRAVENTRICULAR TACHYCARDIA
     Dosage: 100 MG, DAILY
     Route: 048
     Dates: start: 20120201, end: 20120706

REACTIONS (3)
  - DYSPNOEA EXERTIONAL [None]
  - CELL MARKER INCREASED [None]
  - CARDIAC DISORDER [None]
